FAERS Safety Report 23077166 (Version 7)
Quarter: 2024Q1

REPORT INFORMATION
  Report Type: Report from Study
  Country: CA (occurrence: CA)
  Receive Date: 20231018
  Receipt Date: 20240125
  Transmission Date: 20240410
  Serious: Yes (Other)
  Sender: FDA-Public Use
  Company Number: CA-JNJFOC-20231035009

PATIENT
  Age: 54 Year
  Sex: Female
  Weight: 133 kg

DRUGS (3)
  1. REMICADE [Suspect]
     Active Substance: INFLIXIMAB
     Indication: Crohn^s disease
     Route: 041
     Dates: start: 20220802
  2. REMICADE [Suspect]
     Active Substance: INFLIXIMAB
     Indication: Colitis
     Dosage: DOSE REDUCED
     Route: 041
     Dates: start: 20231018
  3. REMICADE [Suspect]
     Active Substance: INFLIXIMAB
     Route: 041

REACTIONS (8)
  - Intestinal resection [Unknown]
  - Postoperative wound infection [Recovered/Resolved]
  - Frequent bowel movements [Unknown]
  - Diarrhoea [Unknown]
  - Drug level decreased [Unknown]
  - Antibody test abnormal [Unknown]
  - Malaise [Unknown]
  - Rash pruritic [Unknown]

NARRATIVE: CASE EVENT DATE: 20230101
